FAERS Safety Report 15160591 (Version 1)
Quarter: 2018Q3

REPORT INFORMATION
  Report Type: Spontaneous
  Country: US (occurrence: US)
  Receive Date: 20180621
  Receipt Date: 20180621
  Transmission Date: 20181010
  Serious: No
  Sender: FDA-Public Use
  Company Number: None

PATIENT
  Age: 76 Year
  Sex: Female

DRUGS (1)
  1. MYCOPHENOLATE MOFETIL CAP 250MG [Suspect]
     Active Substance: MYCOPHENOLATE MOFETIL
     Dates: start: 20180420, end: 20180621

REACTIONS (4)
  - Nausea [None]
  - Diarrhoea [None]
  - Abdominal pain [None]
  - Drug dose omission [None]

NARRATIVE: CASE EVENT DATE: 20180621
